FAERS Safety Report 25879267 (Version 2)
Quarter: 2025Q4

REPORT INFORMATION
  Report Type: Spontaneous
  Country: US (occurrence: US)
  Receive Date: 20251003
  Receipt Date: 20251111
  Transmission Date: 20260117
  Serious: Yes (Hospitalization, Other)
  Sender: PFIZER
  Company Number: US-AMGEN-USASP2025194505

PATIENT
  Age: 59 Year
  Sex: Female

DRUGS (32)
  1. ENBREL [Suspect]
     Active Substance: ETANERCEPT
     Dosage: UNK
     Route: 065
     Dates: end: 2005
  2. METHOTREXATE SODIUM [Suspect]
     Active Substance: METHOTREXATE SODIUM
     Dosage: UNK
     Route: 065
  3. PREDNISONE [Concomitant]
     Active Substance: PREDNISONE
     Dosage: 20 MILLIGRAM
     Route: 065
     Dates: start: 20150518
  4. FISH OIL\OMEGA-3 FATTY ACIDS [Concomitant]
     Active Substance: FISH OIL\OMEGA-3 FATTY ACIDS
     Dosage: (1200)
     Dates: start: 20220719
  5. AZATHIOPRINE [Concomitant]
     Active Substance: AZATHIOPRINE
     Dosage: 50 MILLIGRAM
     Route: 048
     Dates: start: 20150127
  6. DOCUSATE SODIUM [Concomitant]
     Active Substance: DOCUSATE SODIUM
     Dosage: UNK
     Route: 065
     Dates: start: 20250919
  7. GOLIMUMAB [Concomitant]
     Active Substance: GOLIMUMAB
     Dosage: 50 MILLIGRAM
     Route: 065
     Dates: start: 20250919
  8. INFLIXIMAB [Concomitant]
     Active Substance: INFLIXIMAB
     Dosage: 100 MILLIGRAM
     Dates: start: 20220719
  9. PRAMIPEXOLE [Concomitant]
     Active Substance: PRAMIPEXOLE
     Dosage: 125 MILLIGRAM
     Dates: start: 20150518
  10. REMICADE [Concomitant]
     Active Substance: INFLIXIMAB
     Dosage: UNK
  11. ABATACEPT [Concomitant]
     Active Substance: ABATACEPT
     Dosage: UNK
     Route: 051
  12. AMLODIPINE [Concomitant]
     Active Substance: AMLODIPINE BESYLATE
     Dosage: UNK
  13. HUMIRA [Concomitant]
     Active Substance: ADALIMUMAB
     Dosage: UNK
  14. CIMZIA [Concomitant]
     Active Substance: CERTOLIZUMAB PEGOL
     Dosage: UNK
  15. SIMPONI ARIA [Concomitant]
     Active Substance: GOLIMUMAB
     Dosage: UNK
     Route: 040
     Dates: start: 20211101
  16. ALBUTEROL SULFATE [Concomitant]
     Active Substance: ALBUTEROL SULFATE
     Dosage: (INHALE TWO PUFFS)
     Route: 048
  17. AZITHROMYCIN [Concomitant]
     Active Substance: AZITHROMYCIN
     Dosage: 250 MILLIGRAM
     Route: 065
     Dates: start: 20250723
  18. ALBUTEROL SULFATE [Concomitant]
     Active Substance: ALBUTEROL SULFATE
     Dosage: 5 MILLIGRAM
     Dates: start: 20120827
  19. BUDESONIDE\FORMOTEROL [Concomitant]
     Active Substance: BUDESONIDE\FORMOTEROL
     Dosage: MICROGRAM (160/4.5)
     Route: 065
  20. CALCIUM CARBONATE [Concomitant]
     Active Substance: CALCIUM CARBONATE
     Dosage: UNK
     Route: 065
  21. CHOLECALCIFEROL [Concomitant]
     Active Substance: CHOLECALCIFEROL
     Dosage: 2000 UNIT
     Route: 048
  22. CHROMIUM [Concomitant]
     Active Substance: CHROMIC CHLORIDE\CHROMIUM
     Dosage: UNK
     Route: 050
  23. CIPROFLOXACIN [Concomitant]
     Active Substance: CIPROFLOXACIN
     Dosage: UNK
     Route: 065
  24. CYCLOSPORINE [Concomitant]
     Active Substance: CYCLOSPORINE
     Dosage: 0.05 %
     Route: 065
  25. FAMOTIDINE [Concomitant]
     Active Substance: FAMOTIDINE
     Dosage: 40 MILLIGRAM
  26. LOSARTAN POTASSIUM [Concomitant]
     Active Substance: LOSARTAN POTASSIUM
     Dosage: UNK
  27. VITAMINS [Concomitant]
     Active Substance: VITAMINS
     Dosage: UNK
  28. PRAVASTATIN [Concomitant]
     Active Substance: PRAVASTATIN
     Dosage: 10 MILLIGRAM
  29. SULFAMETHOXAZOLE AND TRIMETHOPRIM [Concomitant]
     Active Substance: SULFAMETHOXAZOLE\TRIMETHOPRIM
     Dosage: UNK MILLIGRAM ( 800-160)
  30. RISEDRONATE SODIUM [Concomitant]
     Active Substance: RISEDRONATE SODIUM
     Dosage: 35 MILLIGRAM
  31. FORMOTEROL [Concomitant]
     Active Substance: FORMOTEROL
     Dosage: UNK
     Route: 065
  32. HYDROXYCHLOROQUINE SULFATE [Concomitant]
     Active Substance: HYDROXYCHLOROQUINE SULFATE
     Dosage: UNK (200)
     Dates: start: 20220719

REACTIONS (47)
  - Femur fracture [Not Recovered/Not Resolved]
  - Aspergillus infection [Unknown]
  - Atypical mycobacterial infection [Unknown]
  - Cervical spinal stenosis [Not Recovered/Not Resolved]
  - Bronchiectasis [Not Recovered/Not Resolved]
  - Mycobacterium avium complex infection [Not Recovered/Not Resolved]
  - Skin cancer [Not Recovered/Not Resolved]
  - Nocardiosis [Not Recovered/Not Resolved]
  - Rheumatoid arthritis [Not Recovered/Not Resolved]
  - Dermatitis bullous [Not Recovered/Not Resolved]
  - Pulmonary fibrosis [Not Recovered/Not Resolved]
  - Pseudomonas infection [Unknown]
  - Polychondritis [Not Recovered/Not Resolved]
  - Connective tissue disorder [Not Recovered/Not Resolved]
  - Cough [Not Recovered/Not Resolved]
  - Bone erosion [Unknown]
  - Arthralgia [Not Recovered/Not Resolved]
  - Lung disorder [Not Recovered/Not Resolved]
  - Anaemia macrocytic [Not Recovered/Not Resolved]
  - Bone disorder [Not Recovered/Not Resolved]
  - Limb injury [Recovered/Resolved]
  - Foot deformity [Not Recovered/Not Resolved]
  - Neck pain [Not Recovered/Not Resolved]
  - Therapeutic product effect decreased [Unknown]
  - Myringitis [Not Recovered/Not Resolved]
  - Onychoclasis [Not Recovered/Not Resolved]
  - Restless legs syndrome [Not Recovered/Not Resolved]
  - Undifferentiated connective tissue disease [Not Recovered/Not Resolved]
  - Osteopenia [Not Recovered/Not Resolved]
  - Psoriasis [Not Recovered/Not Resolved]
  - Macrocytosis [Not Recovered/Not Resolved]
  - Weight decreased [Not Recovered/Not Resolved]
  - Myoclonus [Not Recovered/Not Resolved]
  - Chest pain [Not Recovered/Not Resolved]
  - Asthma [Not Recovered/Not Resolved]
  - Spondylolisthesis [Not Recovered/Not Resolved]
  - Giant cell arteritis [Not Recovered/Not Resolved]
  - Stress fracture [Not Recovered/Not Resolved]
  - Chronic obstructive pulmonary disease [Not Recovered/Not Resolved]
  - Vitamin D deficiency [Not Recovered/Not Resolved]
  - Dyslipidaemia [Not Recovered/Not Resolved]
  - Gastrooesophageal reflux disease [Not Recovered/Not Resolved]
  - Hypercholesterolaemia [Not Recovered/Not Resolved]
  - Nail disorder [Not Recovered/Not Resolved]
  - Trigger finger [Not Recovered/Not Resolved]
  - Hypertension [Not Recovered/Not Resolved]
  - Osteoarthritis [Unknown]

NARRATIVE: CASE EVENT DATE: 20071127
